FAERS Safety Report 21352711 (Version 1)
Quarter: 2022Q3

REPORT INFORMATION
  Report Type: Spontaneous
  Country: US (occurrence: US)
  Receive Date: 20220920
  Receipt Date: 20220920
  Transmission Date: 20221027
  Serious: No
  Sender: FDA-Public Use
  Company Number: US-BRISTOL-MYERS SQUIBB COMPANY-2022-107706

PATIENT
  Age: 53 Year
  Sex: Female

DRUGS (1)
  1. ORENCIA [Suspect]
     Active Substance: ABATACEPT
     Indication: Pain
     Dosage: FREQUENCY: EVERY WEEK
     Route: 058
     Dates: start: 202203

REACTIONS (2)
  - Herpes zoster [Unknown]
  - Intentional product use issue [Unknown]
